FAERS Safety Report 17073028 (Version 2)
Quarter: 2019Q4

REPORT INFORMATION
  Report Type: Spontaneous
  Country: US (occurrence: US)
  Receive Date: 20191125
  Receipt Date: 20191126
  Transmission Date: 20200122
  Serious: No
  Sender: FDA-Public Use
  Company Number: US-TEVA-2019-US-1141121

PATIENT
  Age: 82 Year
  Sex: Female

DRUGS (1)
  1. LORAZEPAM. [Suspect]
     Active Substance: LORAZEPAM
     Dosage: 1 MILLIGRAM DAILY; 1 TABLET MY MOUTH AT NIGHT
     Route: 048
     Dates: start: 20191116

REACTIONS (4)
  - Product substitution issue [Unknown]
  - Product quality issue [Unknown]
  - Abdominal pain upper [Unknown]
  - Insomnia [Unknown]

NARRATIVE: CASE EVENT DATE: 20191116
